FAERS Safety Report 6176238-2 (Version None)
Quarter: 2009Q2

REPORT INFORMATION
  Report Type: 
  Country: None (occurrence: None)
  Receive Date: 20090501
  Receipt Date: 20090424
  Transmission Date: 20091009
  Serious: Yes (Hospitalization)
  Sender: FDA-Public Use
  Company Number: B0342239A

PATIENT
  Sex: Male

DRUGS (2)
  1. PAROXETINE HCL [Suspect]
     Route: 065
     Dates: start: 19970916
  2. LITHIUM CARBONATE [Concomitant]

REACTIONS (33)
  - AGGRESSION [None]
  - AGITATION [None]
  - ANGER [None]
  - ANXIETY [None]
  - ASTHENIA [None]
  - BURNING SENSATION [None]
  - DECREASED APPETITE [None]
  - DEPRESSED MOOD [None]
  - DISTURBANCE IN ATTENTION [None]
  - DIZZINESS [None]
  - DRUG WITHDRAWAL SYNDROME [None]
  - DYSKINESIA [None]
  - ENERGY INCREASED [None]
  - FATIGUE [None]
  - FLUSHING [None]
  - HEAD TITUBATION [None]
  - HEADACHE [None]
  - HYPOAESTHESIA [None]
  - INSOMNIA [None]
  - IRRITABILITY [None]
  - MALAISE [None]
  - MANIA [None]
  - MOOD ALTERED [None]
  - PAIN [None]
  - PANIC ATTACK [None]
  - PARAESTHESIA [None]
  - PERSONALITY CHANGE [None]
  - RASH [None]
  - RESTLESSNESS [None]
  - SKIN REACTION [None]
  - SUICIDAL IDEATION [None]
  - SUICIDE ATTEMPT [None]
  - TREMOR [None]
